FAERS Safety Report 7112849-5 (Version None)
Quarter: 2010Q4

REPORT INFORMATION
  Report Type: 
  Country: None (occurrence: None)
  Receive Date: 20101119
  Receipt Date: 20100927
  Transmission Date: 20110411
  Serious: No
  Sender: FDA-Public Use
  Company Number: US-BRISTOL-MYERS SQUIBB COMPANY-15309917

PATIENT
  Age: 83 Year
  Sex: Female

DRUGS (11)
  1. AVALIDE [Suspect]
  2. VESICARE [Suspect]
     Indication: INCONTINENCE
     Dosage: ALSO TAKEN 10MG TOTAL DOSE 2010/1 DAY UID/QD
     Route: 048
     Dates: start: 20100801
  3. DILTIAZEM CD [Concomitant]
  4. MELOXICAM [Concomitant]
  5. PREMARIN [Concomitant]
  6. PREVACID [Concomitant]
  7. THYROID [Concomitant]
  8. LOTEMAX [Concomitant]
  9. FLUOROMETHOLONE [Concomitant]
  10. ALPHAGAN [Concomitant]
  11. DORZOLAMIDE HYDROCHLORIDE [Concomitant]

REACTIONS (3)
  - DRY EYE [None]
  - DRY MOUTH [None]
  - INSOMNIA [None]
